FAERS Safety Report 23405916 (Version 1)
Quarter: 2024Q1

REPORT INFORMATION
  Report Type: Spontaneous
  Country: US (occurrence: US)
  Receive Date: 20240116
  Receipt Date: 20240116
  Transmission Date: 20240410
  Serious: No
  Sender: FDA-Public Use
  Company Number: US-HALOZYME THERAPEUTICS, INC.-2023-US-HYL-03482

PATIENT

DRUGS (6)
  1. HYLENEX RECOMBINANT [Suspect]
     Active Substance: HYALURONIDASE (HUMAN RECOMBINANT)
     Indication: Chronic graft versus host disease
     Dosage: 480 IU INTERNATIONAL UNIT(S)
     Route: 026
     Dates: start: 202002
  2. HYLENEX RECOMBINANT [Suspect]
     Active Substance: HYALURONIDASE (HUMAN RECOMBINANT)
     Dosage: 960 IU INTERNATIONAL UNIT(S)
     Route: 026
     Dates: start: 202003
  3. HYLENEX RECOMBINANT [Suspect]
     Active Substance: HYALURONIDASE (HUMAN RECOMBINANT)
     Dosage: 960 IU INTERNATIONAL UNIT(S)
     Route: 026
     Dates: start: 202006
  4. HYLENEX RECOMBINANT [Suspect]
     Active Substance: HYALURONIDASE (HUMAN RECOMBINANT)
     Dosage: 960 IU INTERNATIONAL UNIT(S)
     Route: 026
     Dates: start: 202006
  5. HYLENEX RECOMBINANT [Suspect]
     Active Substance: HYALURONIDASE (HUMAN RECOMBINANT)
     Dosage: 720 IU INTERNATIONAL UNIT(S)
     Route: 026
     Dates: start: 202007
  6. PEMBROLIZUMAB [Suspect]
     Active Substance: PEMBROLIZUMAB
     Indication: Malignant melanoma
     Dosage: SINGLE INFUSION
     Dates: start: 202002

REACTIONS (2)
  - Injection site pain [None]
  - Chronic graft versus host disease [Not Recovered/Not Resolved]

NARRATIVE: CASE EVENT DATE: 20200101
